FAERS Safety Report 10917409 (Version 1)
Quarter: 2015Q1

REPORT INFORMATION
  Report Type: Spontaneous
  Country: US (occurrence: None)
  Receive Date: 20150312
  Receipt Date: 20150312
  Transmission Date: 20150721
  Serious: No
  Sender: FDA-Public Use
  Company Number: None

PATIENT
  Age: 24 Year
  Weight: 59.42 kg

DRUGS (1)
  1. SUMAVEL DOSEPRO [Suspect]
     Active Substance: SUMATRIPTAN SUCCINATE
     Dosage: 1 SHOT, AS NEEDED, INTO THE MUSCLE
     Dates: start: 20150311

REACTIONS (2)
  - Hypoaesthesia [None]
  - Condition aggravated [None]

NARRATIVE: CASE EVENT DATE: 20150311
